FAERS Safety Report 5212270-0 (Version None)
Quarter: 2007Q1

REPORT INFORMATION
  Report Type: 
  Country: None (occurrence: None)
  Receive Date: 20070118
  Receipt Date: 20070112
  Transmission Date: 20070707
  Serious: Yes (Death)
  Sender: FDA-Public Use
  Company Number: US-BOEHRINGER INGELHEIM GMBH, GERMANY-2007-DE-00235GD

PATIENT
  Age: 37 Year
  Sex: Male

DRUGS (5)
  1. METAMIZOLE [Suspect]
  2. CLARITHROMYCIN [Suspect]
     Route: 048
  3. CEFIXIME CHEWABLE [Suspect]
  4. CODEINE SUL TAB [Concomitant]
  5. ACETYLCYSTEINE [Concomitant]

REACTIONS (1)
  - AGRANULOCYTOSIS [None]
